FAERS Safety Report 7458176-8 (Version None)
Quarter: 2011Q2

REPORT INFORMATION
  Report Type: 
  Country: None (occurrence: None)
  Receive Date: 20110503
  Receipt Date: 20110503
  Transmission Date: 20111010
  Serious: No
  Sender: FDA-Public Use
  Company Number: None

PATIENT
  Age: 63 Year
  Sex: Male
  Weight: 73.6 kg

DRUGS (1)
  1. ROPIVACAINE HYDROCHLORIDE [Suspect]
     Indication: SURGERY
     Dosage: 20 ML ONCE
     Dates: start: 20110415, end: 20110415

REACTIONS (1)
  - DRUG EFFECT DECREASED [None]
